FAERS Safety Report 8011940 (Version 4)
Quarter: 2014Q2

REPORT INFORMATION
  Report Type: Spontaneous
  Country: US (occurrence: US)
  Receive Date: 20110628
  Receipt Date: 20140512
  Transmission Date: 20141212
  Serious: Yes (Hospitalization, Other)
  Sender: FDA-Public Use
  Company Number: US-BAYER-2011-052342

PATIENT
  Age: 28 Year
  Sex: Female
  Weight: 56.69 kg

DRUGS (16)
  1. YAZ [Suspect]
     Indication: CONTRACEPTION
     Dosage: UNK
  2. YASMIN [Suspect]
     Indication: CONTRACEPTION
     Dosage: UNK
     Dates: start: 200510, end: 200807
  3. OCELLA [Suspect]
     Indication: CONTRACEPTION
     Dosage: UNK
     Dates: start: 200810, end: 200904
  4. IBUPROFEN [Concomitant]
     Indication: HEADACHE
     Dosage: UNK
     Dates: start: 2002, end: 2008
  5. IBUPROFEN [Concomitant]
     Indication: HEADACHE
     Dosage: UNK
     Dates: start: 20050218, end: 20080426
  6. AMOXICILLIN [Concomitant]
     Indication: HELICOBACTER GASTRITIS
     Dosage: 2 PILLS 2 TIMES A DAY FOR 14 DAYS
     Dates: start: 200805, end: 200806
  7. AMOXICILLIN [Concomitant]
     Indication: HELICOBACTER GASTRITIS
     Dosage: 500 MG, UNK
     Route: 048
     Dates: start: 20080527
  8. ALBUTEROL [Concomitant]
     Indication: ASTHMA
     Dosage: UNK
     Route: 045
     Dates: start: 20080527
  9. CLARITHROMYCIN [Concomitant]
     Indication: HELICOBACTER GASTRITIS
     Dosage: 1 TABLET 2 TIMES A DAY FOR 14 DAYS
     Dates: start: 20080527
  10. CLARITHROMYCIN [Concomitant]
     Indication: HELICOBACTER GASTRITIS
     Dosage: 500 MG, UNK
     Route: 048
     Dates: start: 20080527
  11. ALBUTEROL SULFATE [Concomitant]
     Dosage: UNK
     Dates: start: 20071226, end: 20080710
  12. HYDROCODONE W/ACETAMINOPHEN [Concomitant]
     Indication: PAIN
     Dosage: UNK
     Dates: start: 20080516
  13. ACETAMINOPHEN W/CODEINE [Concomitant]
     Indication: PAIN
     Dosage: 1 TABLET EVERY 4 HOURS AS NEEDED
     Route: 048
     Dates: start: 20080527
  14. OMEPRAZOLE [Concomitant]
     Dosage: 2 CAPSULES 2 TIMES DAILY 30 MINUTES BEFORE MEALS
     Route: 048
     Dates: start: 20080515
  15. PROTONIX [Concomitant]
     Dosage: 20 MG, 1 TAB DAILY
     Route: 048
     Dates: start: 20080515
  16. PROAIR HFA [Concomitant]
     Dosage: 2 PUFFS EVERY 4 HOURS AS NEEDED
     Route: 048

REACTIONS (13)
  - Cholecystitis chronic [None]
  - Cholecystectomy [None]
  - Injury [None]
  - Pain [None]
  - Scar [None]
  - Abdominal distension [None]
  - Flatulence [None]
  - Dyspepsia [None]
  - Constipation [None]
  - Diarrhoea [None]
  - Anxiety [None]
  - Depression [None]
  - Mental disorder [None]
